FAERS Safety Report 17313283 (Version 1)
Quarter: 2020Q1

REPORT INFORMATION
  Report Type: Spontaneous
  Country: US (occurrence: US)
  Receive Date: 20200107
  Receipt Date: 20200107
  Transmission Date: 20200409
  Serious: Yes (Hospitalization)
  Sender: FDA-Public Use
  Company Number: None

PATIENT
  Age: 77 Year
  Sex: Male

DRUGS (7)
  1. MIDODRINE [Concomitant]
     Active Substance: MIDODRINE
  2. ESBRIET [Suspect]
     Active Substance: PIRFENIDONE
     Indication: IDIOPATHIC PULMONARY FIBROSIS
     Dosage: ?          OTHER DOSE:3 CAPS;?
     Route: 048
     Dates: start: 20181108
  3. FLUDROCORT [Concomitant]
  4. BUDESONIDE. [Suspect]
     Active Substance: BUDESONIDE
  5. CEPHALEXIN. [Concomitant]
     Active Substance: CEPHALEXIN
  6. IPRATROPIUM/SOL ALBUTER [Concomitant]
  7. PREDNISONE. [Concomitant]
     Active Substance: PREDNISONE

REACTIONS (2)
  - Blood glucose abnormal [None]
  - Hospitalisation [None]

NARRATIVE: CASE EVENT DATE: 20191222
